FAERS Safety Report 4527837-2 (Version None)
Quarter: 2004Q4

REPORT INFORMATION
  Report Type: 
  Country: None (occurrence: None)
  Receive Date: 20041123
  Receipt Date: 20040318
  Transmission Date: 20050328
  Serious: Yes (Hospitalization)
  Sender: FDA-Public Use
  Company Number: ATO-04-0251

PATIENT
  Age: 61 Year
  Sex: Female
  Weight: 81.6475 kg

DRUGS (4)
  1. TRISENOX [Suspect]
     Indication: MULTIPLE MYELOMA
     Dosage: (20 MG, 4 DAYS), IVI
     Route: 042
     Dates: start: 20040307, end: 20040310
  2. MELPHALAN [Suspect]
     Indication: MULTIPLE MYELOMA
     Dosage: 8 MG (8 MG, 4 DAYS), IVI
     Route: 042
     Dates: start: 20040307, end: 20040310
  3. VITAMIN C [Suspect]
     Indication: MULTIPLE MYELOMA
     Dosage: 1000 MG (1000 MG, 4 DAYS), IVI
     Route: 042
     Dates: start: 20040307, end: 20040310
  4. DIFLUCAN [Concomitant]

REACTIONS (2)
  - ASTHENIA [None]
  - PYREXIA [None]
